FAERS Safety Report 4273762-4 (Version None)
Quarter: 2004Q1

REPORT INFORMATION
  Report Type: 
  Country: None (occurrence: None)
  Receive Date: 20040114
  Receipt Date: 20031212
  Transmission Date: 20041129
  Serious: Yes (Death)
  Sender: FDA-Public Use
  Company Number: 6973

PATIENT
  Age: 53 Year
  Sex: Male

DRUGS (3)
  1. CISPLATIN [Suspect]
     Indication: OESOPHAGEAL CARCINOMA
     Dosage: 20 MG
     Dates: start: 20020528, end: 20020601
  2. FLUOROURACIL [Suspect]
     Indication: OESOPHAGEAL CARCINOMA
     Dosage: 800 MG
     Dates: start: 20020528, end: 20020601
  3. LEUCOVORIN CALCIUM [Suspect]
     Indication: OESOPHAGEAL CARCINOMA
     Dosage: 25 MG
     Dates: start: 20020528, end: 20020601

REACTIONS (7)
  - CARDIO-RESPIRATORY ARREST [None]
  - DYSPHAGIA [None]
  - MEDIASTINITIS [None]
  - NAUSEA [None]
  - OESOPHAGEAL PERFORATION [None]
  - PLEURAL EFFUSION [None]
  - POST PROCEDURAL COMPLICATION [None]
